FAERS Safety Report 15517919 (Version 1)
Quarter: 2018Q4

REPORT INFORMATION
  Report Type: Spontaneous
  Country: US (occurrence: US)
  Receive Date: 20181017
  Receipt Date: 20181017
  Transmission Date: 20190205
  Serious: No
  Sender: FDA-Public Use
  Company Number: US-PERRIGO-18US003463

PATIENT
  Age: 27 Year
  Sex: Female
  Weight: 54.42 kg

DRUGS (1)
  1. ERYTHROMYCIN. [Suspect]
     Active Substance: ERYTHROMYCIN
     Indication: HORDEOLUM
     Dosage: ONE APPLICATION TO RIGHT UPPER EYELID, UNKNOWN
     Route: 047
     Dates: start: 201612, end: 201612

REACTIONS (6)
  - Ocular hyperaemia [Not Recovered/Not Resolved]
  - Blepharitis [Not Recovered/Not Resolved]
  - Hypersensitivity [Not Recovered/Not Resolved]
  - Ocular rosacea [Not Recovered/Not Resolved]
  - Meibomian gland dysfunction [Not Recovered/Not Resolved]
  - Eye swelling [Not Recovered/Not Resolved]

NARRATIVE: CASE EVENT DATE: 201612
